FAERS Safety Report 9146651 (Version 1)
Quarter: 2013Q1

REPORT INFORMATION
  Report Type: Spontaneous
  Country: US (occurrence: US)
  Receive Date: 20130307
  Receipt Date: 20130307
  Transmission Date: 20140127
  Serious: Yes (Death)
  Sender: FDA-Public Use
  Company Number: US-MYLANLABS-2013S1004429

PATIENT
  Sex: Male

DRUGS (1)
  1. CYCLOBENZAPRINE [Suspect]
     Route: 065

REACTIONS (1)
  - Death [Fatal]
